FAERS Safety Report 7626305-9 (Version None)
Quarter: 2011Q3

REPORT INFORMATION
  Report Type: 
  Country: None (occurrence: None)
  Receive Date: 20110721
  Receipt Date: 20110714
  Transmission Date: 20111222
  Serious: Yes (Life-Threatening)
  Sender: FDA-Public Use
  Company Number: PHHY2011US40130

PATIENT
  Sex: Male
  Weight: 110.66 kg

DRUGS (1)
  1. EXFORGE [Suspect]
     Indication: HYPERTENSION
     Dosage: 1 DF, QD 320 MG VAL AND 10 MG AMLO
     Route: 048
     Dates: start: 20110207, end: 20110503

REACTIONS (3)
  - OROPHARYNGEAL PAIN [None]
  - PRURITUS [None]
  - EAR PAIN [None]
